FAERS Safety Report 24575850 (Version 1)
Quarter: 2024Q4

REPORT INFORMATION
  Report Type: Spontaneous
  Country: JP (occurrence: JP)
  Receive Date: 20241104
  Receipt Date: 20241104
  Transmission Date: 20250115
  Serious: Yes (Other)
  Sender: TAKEDA
  Company Number: JP-OTSUKA-2024_026404

PATIENT
  Age: 1 Decade

DRUGS (2)
  1. ICLUSIG [Suspect]
     Active Substance: PONATINIB HYDROCHLORIDE
     Indication: Philadelphia positive acute lymphocytic leukaemia
     Dosage: 1.5 DOSAGE FORM
     Route: 048
     Dates: start: 202409
  2. REMESTEMCEL-L [Suspect]
     Active Substance: REMESTEMCEL-L
     Indication: Graft versus host disease
     Dosage: UNK
     Route: 065
     Dates: start: 202409

REACTIONS (5)
  - Graft versus host disease [Unknown]
  - Dermatitis allergic [Unknown]
  - Product dispensing error [Unknown]
  - Wrong technique in product usage process [Unknown]
  - Product use issue [Unknown]

NARRATIVE: CASE EVENT DATE: 20240901
